FAERS Safety Report 16476713 (Version 2)
Quarter: 2019Q3

REPORT INFORMATION
  Report Type: Spontaneous
  Country: NL (occurrence: NL)
  Receive Date: 20190626
  Receipt Date: 20190708
  Transmission Date: 20191004
  Serious: Yes (Hospitalization)
  Sender: FDA-Public Use
  Company Number: NL-UCBSA-2019026377

PATIENT
  Age: 67 Year
  Sex: Female
  Weight: 98 kg

DRUGS (1)
  1. KEPPRA [Suspect]
     Active Substance: LEVETIRACETAM
     Indication: GENERALISED TONIC-CLONIC SEIZURE
     Dosage: 2-1-2-2 TABLETS, 4X/DAY (QID)
     Route: 048
     Dates: start: 201902, end: 20190414

REACTIONS (3)
  - Diarrhoea [Recovered/Resolved]
  - Off label use [Unknown]
  - Liver disorder [Unknown]

NARRATIVE: CASE EVENT DATE: 201902
